FAERS Safety Report 8918730 (Version 5)
Quarter: 2014Q3

REPORT INFORMATION
  Report Type: Spontaneous
  Country: US (occurrence: US)
  Receive Date: 20121120
  Receipt Date: 20140909
  Transmission Date: 20150326
  Serious: Yes (Hospitalization, Other)
  Sender: FDA-Public Use
  Company Number: US-009507513-1205USA02339

PATIENT
  Sex: Female

DRUGS (3)
  1. BONIVA [Suspect]
     Active Substance: IBANDRONATE SODIUM
     Indication: OSTEOPOROSIS
     Dosage: 150 MG, QM
     Dates: start: 200802, end: 200811
  2. FOSAMAX [Suspect]
     Active Substance: ALENDRONATE SODIUM
     Indication: OSTEOPOROSIS
     Dosage: 70 MG, UNK
     Route: 048
     Dates: start: 1995
  3. BONIVA [Suspect]
     Active Substance: IBANDRONATE SODIUM
     Indication: OSTEOPOROSIS

REACTIONS (38)
  - Balance disorder [Unknown]
  - Arthritis [Unknown]
  - Respiratory failure [Unknown]
  - Hypertension [Unknown]
  - Fall [Unknown]
  - Dementia [Unknown]
  - Pneumonia bacterial [Unknown]
  - Osteoarthritis [Unknown]
  - Vitamin D deficiency [Unknown]
  - Tooth disorder [Unknown]
  - Pain in extremity [Recovered/Resolved]
  - Blood calcium decreased [Unknown]
  - Intervertebral disc protrusion [Unknown]
  - Radiculopathy [Unknown]
  - Cerebrovascular disorder [Unknown]
  - Transient ischaemic attack [Unknown]
  - Calcium deficiency [Unknown]
  - Back pain [Not Recovered/Not Resolved]
  - Knee arthroplasty [Recovering/Resolving]
  - Eye disorder [Unknown]
  - Hypothyroidism [Unknown]
  - Cerebrovascular accident [Unknown]
  - Atrial fibrillation [Unknown]
  - Tooth extraction [Unknown]
  - Intramedullary rod insertion [Unknown]
  - Knee arthroplasty [Recovering/Resolving]
  - Anaemia postoperative [Unknown]
  - Depression [Unknown]
  - Spinal compression fracture [Unknown]
  - Urine output decreased [Recovered/Resolved]
  - Nausea [Recovered/Resolved]
  - Femur fracture [Unknown]
  - Low turnover osteopathy [Unknown]
  - Hyperlipidaemia [Unknown]
  - Renal failure chronic [Unknown]
  - Foot fracture [Unknown]
  - Incontinence [Unknown]
  - Vitamin D decreased [Unknown]

NARRATIVE: CASE EVENT DATE: 1995
